FAERS Safety Report 6191310-9 (Version None)
Quarter: 2009Q2

REPORT INFORMATION
  Report Type: 
  Country: None (occurrence: None)
  Receive Date: 20090515
  Receipt Date: 20090506
  Transmission Date: 20091009
  Serious: Yes (Other)
  Sender: FDA-Public Use
  Company Number: NL-ROCHE-632285

PATIENT
  Sex: Male
  Weight: 83 kg

DRUGS (2)
  1. PEGASYS [Suspect]
     Indication: HEPATITIS C
     Route: 050
     Dates: start: 20081030
  2. COPEGUS [Suspect]
     Indication: HEPATITIS C
     Dosage: FREQUENCY REPORTED AS DAILY.
     Route: 048
     Dates: start: 20081030

REACTIONS (3)
  - ANAEMIA [None]
  - LEUKOPENIA [None]
  - THROMBOCYTOPENIA [None]
